FAERS Safety Report 8500484-3 (Version None)
Quarter: 2012Q3

REPORT INFORMATION
  Report Type: 
  Country: None (occurrence: None)
  Receive Date: 20120705
  Receipt Date: 20120705
  Transmission Date: 20120928
  Serious: Yes (Hospitalization)
  Sender: FDA-Public Use
  Company Number: None

PATIENT
  Age: 89 Year
  Sex: Female
  Weight: 68.0396 kg

DRUGS (3)
  1. HYDROXYZINE HCL [Suspect]
     Indication: ISCHAEMIC STROKE
     Dosage: ONE 25MG TABLET 3 TIMES A DAY PO
     Route: 048
     Dates: start: 20120620, end: 20120702
  2. HYDROXYZINE HCL [Suspect]
     Indication: BLOOD PRESSURE INCREASED
     Dosage: ONE 25MG TABLET 3 TIMES A DAY PO
     Route: 048
     Dates: start: 20120620, end: 20120702
  3. HYDRALAZINE 25MG HYDROCHLORIDE TAB [Suspect]
     Dosage: ONE 25MG TABLET 3 TIMES A DAY PO
     Route: 048
     Dates: start: 20120420, end: 20120619

REACTIONS (3)
  - MEDICATION ERROR [None]
  - BLOOD PRESSURE INCREASED [None]
  - INCORRECT DOSE ADMINISTERED [None]
